FAERS Safety Report 17353009 (Version 1)
Quarter: 2020Q1

REPORT INFORMATION
  Report Type: Report from Study
  Country: US (occurrence: US)
  Receive Date: 20200131
  Receipt Date: 20200131
  Transmission Date: 20200409
  Serious: Yes (Death)
  Sender: FDA-Public Use
  Company Number: US-ROCHE-2533681

PATIENT
  Sex: Female

DRUGS (3)
  1. AVASTIN [Suspect]
     Active Substance: BEVACIZUMAB
     Indication: LUNG NEOPLASM MALIGNANT
  2. AVASTIN [Suspect]
     Active Substance: BEVACIZUMAB
     Indication: RENAL CANCER
     Dosage: INFUSE 500 MG (10 MG/KG) INTRAVENOUSLY EVERY 14 DAY
     Route: 042
  3. AVASTIN [Suspect]
     Active Substance: BEVACIZUMAB
     Indication: BONE CANCER
     Dosage: INFUSE 500 MG (10MG/KG) INTRAVENOUSLY EVERY 14 DAY
     Route: 042

REACTIONS (3)
  - Death [Fatal]
  - Off label use [Unknown]
  - Intentional product use issue [Unknown]
